FAERS Safety Report 11051784 (Version 1)
Quarter: 2015Q2

REPORT INFORMATION
  Report Type: Spontaneous
  Country: US (occurrence: None)
  Receive Date: 20150420
  Receipt Date: 20150420
  Transmission Date: 20150821
  Serious: Yes (Death, Hospitalization)
  Sender: FDA-Public Use
  Company Number: None

PATIENT
  Age: 58 Year
  Sex: Male

DRUGS (2)
  1. FLUVIRIN NOS [Concomitant]
     Active Substance: INFLUENZA VIRUS VACCINE
  2. FORTEO [Suspect]
     Active Substance: TERIPARATIDE
     Indication: OSTEOPOROSIS
     Dosage: 600MCG/2.4ML?FORTEO 20MCG, DAILY, SUBCUTANEOUSLY
     Route: 058
     Dates: start: 20150204, end: 20150401

REACTIONS (1)
  - Pyrexia [None]

NARRATIVE: CASE EVENT DATE: 20150401
